FAERS Safety Report 10211908 (Version 1)
Quarter: 2014Q2

REPORT INFORMATION
  Report Type: Spontaneous
  Country: US (occurrence: US)
  Receive Date: 20140602
  Receipt Date: 20140602
  Transmission Date: 20141212
  Serious: Yes (Hospitalization)
  Sender: FDA-Public Use
  Company Number: US-AMGEN-USASP2014033121

PATIENT
  Age: 81 Year
  Sex: Female

DRUGS (3)
  1. ENBREL [Suspect]
     Indication: RHEUMATOID ARTHRITIS
     Dosage: 50 MG, QWK
     Route: 065
     Dates: start: 2010
  2. METHOTREXATE [Concomitant]
     Dosage: UNK MG, UNK
     Dates: end: 2010
  3. PLAQUENIL                          /00072602/ [Concomitant]
     Dosage: 200 MG, BID
     Dates: start: 2010

REACTIONS (7)
  - Cystitis [Recovered/Resolved]
  - Kidney infection [Recovered/Resolved]
  - Escherichia infection [Recovered/Resolved]
  - Tooth fracture [Recovered/Resolved]
  - Tooth extraction [Recovered/Resolved]
  - Device breakage [Recovered/Resolved]
  - Injection site pain [Not Recovered/Not Resolved]
